FAERS Safety Report 5595323-7 (Version None)
Quarter: 2008Q1

REPORT INFORMATION
  Report Type: 
  Country: None (occurrence: None)
  Receive Date: 20080117
  Receipt Date: 20080104
  Transmission Date: 20080703
  Serious: Yes (Hospitalization, Other)
  Sender: FDA-Public Use
  Company Number: AU-GENENTECH-254127

PATIENT
  Sex: Female

DRUGS (2)
  1. HERCEPTIN [Suspect]
     Indication: BREAST CANCER
     Dosage: UNK, UNK
     Route: 042
     Dates: start: 20070715, end: 20070919
  2. TAXOTERE [Concomitant]
     Indication: BREAST CANCER
     Dosage: UNK, UNK
     Dates: start: 20070715

REACTIONS (2)
  - ECZEMA [None]
  - PHOTOSENSITIVITY REACTION [None]
